FAERS Safety Report 14274276 (Version 1)
Quarter: 2017Q4

REPORT INFORMATION
  Report Type: Spontaneous
  Country: US (occurrence: US)
  Receive Date: 20171212
  Receipt Date: 20171212
  Transmission Date: 20180321
  Serious: No
  Sender: FDA-Public Use
  Company Number: None

PATIENT
  Age: 56 Year
  Sex: Female
  Weight: 53.55 kg

DRUGS (1)
  1. RECLAST [Suspect]
     Active Substance: ZOLEDRONIC ACID
     Indication: OSTEOPENIA
     Route: 042
     Dates: start: 20171205, end: 20171205

REACTIONS (11)
  - Chills [None]
  - Bone pain [None]
  - Pain in extremity [None]
  - Myalgia [None]
  - Joint swelling [None]
  - Tremor [None]
  - Retching [None]
  - Peripheral swelling [None]
  - Dyspnoea [None]
  - Sensitivity of teeth [None]
  - Cough [None]

NARRATIVE: CASE EVENT DATE: 20171205
